FAERS Safety Report 15956351 (Version 1)
Quarter: 2019Q1

REPORT INFORMATION
  Report Type: Spontaneous
  Country: US (occurrence: US)
  Receive Date: 20190213
  Receipt Date: 20190213
  Transmission Date: 20190417
  Serious: Yes (Life-Threatening, Hospitalization, Disabling, Other)
  Sender: FDA-Public Use
  Company Number: None

PATIENT
  Age: 46 Year
  Sex: Female
  Weight: 67.5 kg

DRUGS (1)
  1. AIMOVIG [Suspect]
     Active Substance: ERENUMAB-AOOE
     Indication: MIGRAINE
     Dosage: ?          QUANTITY:1 INJECTION(S);OTHER FREQUENCY:1 TIME PER MONTH;OTHER ROUTE:INJECTION INTO MUSCLE- LEG?
     Dates: start: 20181024, end: 20181024

REACTIONS (11)
  - Optic nerve disorder [None]
  - Fluid retention [None]
  - Vomiting [None]
  - Migraine [None]
  - Diplopia [None]
  - Hypophagia [None]
  - Glioblastoma multiforme [None]
  - Vertigo [None]
  - Weight decreased [None]
  - Nausea [None]
  - Apparent death [None]

NARRATIVE: CASE EVENT DATE: 20181219
